FAERS Safety Report 6138528-9 (Version None)
Quarter: 2009Q1

REPORT INFORMATION
  Report Type: 
  Country: None (occurrence: None)
  Receive Date: 20090327
  Receipt Date: 20090327
  Transmission Date: 20090719
  Serious: Yes (Hospitalization)
  Sender: FDA-Public Use
  Company Number: None

PATIENT
  Age: 71 Year
  Sex: Male

DRUGS (2)
  1. DIVALPROEX SODIUM [Suspect]
     Indication: DEMENTIA
     Dosage: 1000 MG HS PO
     Route: 048
     Dates: start: 20090227, end: 20090313
  2. DIVALPROEX SODIUM [Suspect]
     Indication: IMPULSIVE BEHAVIOUR
     Dosage: 1000 MG HS PO
     Route: 048
     Dates: start: 20090227, end: 20090313

REACTIONS (3)
  - DIARRHOEA [None]
  - NAUSEA [None]
  - VOMITING [None]
